FAERS Safety Report 12765143 (Version 1)
Quarter: 2016Q3

REPORT INFORMATION
  Report Type: Spontaneous
  Country: GB (occurrence: GB)
  Receive Date: 20160921
  Receipt Date: 20160921
  Transmission Date: 20161109
  Serious: Yes (Other)
  Sender: FDA-Public Use
  Company Number: GB-ROCHE-1832987

PATIENT
  Sex: Male

DRUGS (1)
  1. AVASTIN [Suspect]
     Active Substance: BEVACIZUMAB
     Indication: GASTROINTESTINAL CARCINOMA
     Route: 065
     Dates: start: 2014

REACTIONS (1)
  - Recurrent cancer [Unknown]
